FAERS Safety Report 10487547 (Version 12)
Quarter: 2015Q4

REPORT INFORMATION
  Report Type: Report from Study
  Country: US (occurrence: US)
  Receive Date: 20141001
  Receipt Date: 20151106
  Transmission Date: 20160304
  Serious: Yes (Hospitalization, Other)
  Sender: FDA-Public Use
  Company Number: US-SA-2014SA121399

PATIENT
  Age: 73 Year
  Sex: Female
  Weight: 40.82 kg

DRUGS (4)
  1. AUBAGIO [Suspect]
     Active Substance: TERIFLUNOMIDE
     Indication: MULTIPLE SCLEROSIS
     Route: 048
     Dates: start: 20140609
  2. AUBAGIO [Suspect]
     Active Substance: TERIFLUNOMIDE
     Indication: MULTIPLE SCLEROSIS
     Route: 065
     Dates: start: 20141015, end: 20141231
  3. AUBAGIO [Suspect]
     Active Substance: TERIFLUNOMIDE
     Indication: MULTIPLE SCLEROSIS
     Route: 048
     Dates: end: 20150130
  4. AUBAGIO [Suspect]
     Active Substance: TERIFLUNOMIDE
     Indication: MULTIPLE SCLEROSIS
     Route: 048
     Dates: end: 20150731

REACTIONS (13)
  - Mobility decreased [Unknown]
  - Decubitus ulcer [Recovering/Resolving]
  - Feeling abnormal [Unknown]
  - Bowel movement irregularity [Unknown]
  - Fatigue [Unknown]
  - Movement disorder [Unknown]
  - Anorectal discomfort [Unknown]
  - Diarrhoea [Unknown]
  - Accident [Unknown]
  - Weight increased [Unknown]
  - Osteomyelitis [Unknown]
  - Condition aggravated [Unknown]
  - Drug dose omission [Unknown]

NARRATIVE: CASE EVENT DATE: 201411
